FAERS Safety Report 5475744-3 (Version None)
Quarter: 2007Q4

REPORT INFORMATION
  Report Type: 
  Country: None (occurrence: None)
  Receive Date: 20071001
  Receipt Date: 20070914
  Transmission Date: 20080405
  Serious: No
  Sender: FDA-Public Use
  Company Number: US021279

PATIENT

DRUGS (3)
  1. FENTORA [Suspect]
     Indication: CANCER PAIN
     Dosage: 3360 UG QD BUCCAL
     Route: 002
  2. FENTORA [Suspect]
     Indication: CANCER PAIN
     Dosage: 4480 UG QD BUCCAL
     Route: 002
  3. ACTIQ [Concomitant]

REACTIONS (2)
  - INCORRECT DOSE ADMINISTERED [None]
  - MEDICATION ERROR [None]
